FAERS Safety Report 5272755-8 (Version None)
Quarter: 2007Q1

REPORT INFORMATION
  Report Type: 
  Country: None (occurrence: None)
  Receive Date: 20061219
  Receipt Date: 20060913
  Transmission Date: 20070707
  Serious: Yes (Other)
  Sender: FDA-Public Use
  Company Number: US-JNJFOC-20060904267

PATIENT
  Age: 31 Year
  Sex: Female
  Weight: 73.4827 kg

DRUGS (4)
  1. ORTHO EVRA [Suspect]
     Indication: DRUG USE FOR UNKNOWN INDICATION
     Dosage: TRANSDERMAL
     Route: 062
  2. ALBUTEROL [Concomitant]
  3. LEVAQUIN [Concomitant]
  4. ALLEGRA [Concomitant]

REACTIONS (2)
  - NEPHROLITHIASIS [None]
  - PULMONARY EMBOLISM [None]
